FAERS Safety Report 10070248 (Version 1)
Quarter: 2014Q2

REPORT INFORMATION
  Report Type: Spontaneous
  Country: US (occurrence: None)
  Receive Date: 20140408
  Receipt Date: 20140408
  Transmission Date: 20141212
  Serious: Yes (Hospitalization)
  Sender: FDA-Public Use
  Company Number: COM-002109

PATIENT
  Age: 68 Year
  Sex: Female
  Weight: 88.45 kg

DRUGS (1)
  1. MAGNESIUM CITRATE [Suspect]
     Indication: CONSTIPATION
     Dosage: 1/2 BOTTLE, TWICE IN A FEW MINUTES, ORAL
     Route: 048
     Dates: start: 20140320

REACTIONS (3)
  - Loss of consciousness [None]
  - Feeling cold [None]
  - Foot fracture [None]
